FAERS Safety Report 11905649 (Version 1)
Quarter: 2016Q1

REPORT INFORMATION
  Report Type: Spontaneous
  Country: GB (occurrence: GB)
  Receive Date: 20160110
  Receipt Date: 20160110
  Transmission Date: 20160526
  Serious: Yes (Disabling)
  Sender: FDA-Public Use
  Company Number: GB-DEXPHARM-20153264

PATIENT
  Age: 13 Year
  Sex: Female

DRUGS (9)
  1. RIFINAH [Suspect]
     Active Substance: ISONIAZID\RIFAMPIN
     Dosage: 150MG/100MG
  2. OXYGEN. [Concomitant]
     Active Substance: OXYGEN
  3. SEPTRIN [Suspect]
     Active Substance: SULFAMETHOXAZOLE\TRIMETHOPRIM
  4. PREDNISOLONE. [Concomitant]
     Active Substance: PREDNISOLONE
  5. ONDANSETRON [Concomitant]
     Active Substance: ONDANSETRON
  6. OMEPRAZOLE. [Suspect]
     Active Substance: OMEPRAZOLE
  7. METHOTREXATE [Suspect]
     Active Substance: METHOTREXATE
     Dosage: 15MG/1.5ML
  8. SERETIDE [Suspect]
     Active Substance: FLUTICASONE FUROATE\SALMETEROL XINAFOATE
  9. CALCICHEW D3 [Concomitant]
     Active Substance: CALCIUM\CHOLECALCIFEROL

REACTIONS (1)
  - Paraesthesia [Unknown]
